FAERS Safety Report 13836921 (Version 1)
Quarter: 2017Q3

REPORT INFORMATION
  Report Type: Spontaneous
  Country: US (occurrence: US)
  Receive Date: 20170804
  Receipt Date: 20170804
  Transmission Date: 20171127
  Serious: Yes (Other)
  Sender: FDA-Public Use
  Company Number: US-ROCHE-1024405

PATIENT
  Age: 76 Year
  Sex: Female
  Weight: 48.58 kg

DRUGS (1)
  1. BONIVA [Suspect]
     Active Substance: IBANDRONATE SODIUM
     Indication: PRODUCT USED FOR UNKNOWN INDICATION
     Route: 065
     Dates: start: 20111217, end: 20111217

REACTIONS (1)
  - Pain [Recovering/Resolving]

NARRATIVE: CASE EVENT DATE: 20111217
